FAERS Safety Report 20672982 (Version 1)
Quarter: 2022Q2

REPORT INFORMATION
  Report Type: Spontaneous
  Country: US (occurrence: None)
  Receive Date: 20220403
  Receipt Date: 20220403
  Transmission Date: 20220720
  Serious: Yes (Hospitalization)
  Sender: FDA-Public Use
  Company Number: None

PATIENT
  Age: 63 Year
  Sex: Male

DRUGS (2)
  1. VENLAFAXINE [Suspect]
     Active Substance: VENLAFAXINE HYDROCHLORIDE
     Indication: Depression
     Dosage: FREQUENCY : DAILY;?
     Route: 048
     Dates: start: 20201113
  2. TRAZODONE [Suspect]
     Active Substance: TRAZODONE HYDROCHLORIDE
     Indication: Insomnia
     Dosage: FREQUENCY : AT BEDTIME;?
     Route: 048
     Dates: start: 20201220

REACTIONS (10)
  - Product use issue [None]
  - Clonus [None]
  - Hyperreflexia [None]
  - Serotonin syndrome [None]
  - Encephalopathy [None]
  - Somnolence [None]
  - Delirium [None]
  - Tachycardia [None]
  - Hyperhidrosis [None]
  - Mydriasis [None]

NARRATIVE: CASE EVENT DATE: 20220317
